FAERS Safety Report 10447922 (Version 6)
Quarter: 2018Q1

REPORT INFORMATION
  Report Type: Spontaneous
  Country: JP (occurrence: JP)
  Receive Date: 20140911
  Receipt Date: 20180129
  Transmission Date: 20180508
  Serious: Yes (Hospitalization, Other)
  Sender: FDA-Public Use
  Company Number: JP-ELI_LILLY_AND_COMPANY-JP201406008481

PATIENT
  Sex: Female
  Weight: 43 kg

DRUGS (11)
  1. METHYLDOPA. [Concomitant]
     Active Substance: METHYLDOPA
     Dosage: UNK
     Route: 048
  2. CLOMIFENE [Concomitant]
     Active Substance: CLOMIPHENE
     Indication: PREGNANCY
     Dosage: UNK
     Route: 048
  3. METHYLDOPA. [Concomitant]
     Active Substance: METHYLDOPA
     Dosage: UNK
     Route: 048
  4. LEVEMIR [Suspect]
     Active Substance: INSULIN DETEMIR
     Indication: TYPE 1 DIABETES MELLITUS
     Dosage: 25 IU, QD
     Route: 065
  5. METHYLDOPA. [Concomitant]
     Active Substance: METHYLDOPA
     Indication: HYPERTENSION
     Dosage: UNK
     Route: 048
  6. HUMALOG [Suspect]
     Active Substance: INSULIN LISPRO
     Indication: TYPE 1 DIABETES MELLITUS
     Dosage: PRIOR TO PREGNANCY, BASAL 17 IU AND BOLUS 8 IU
     Route: 058
     Dates: start: 201211
  7. HUMALOG [Suspect]
     Active Substance: INSULIN LISPRO
     Dosage: DURING PREGNANCY, BASAL 23 IU AND BOLUS 8 IU
     Route: 058
  8. PREDNISOLONE. [Concomitant]
     Active Substance: PREDNISOLONE
     Indication: IMMUNOSUPPRESSION
     Dosage: 5 MG, QD
     Route: 065
     Dates: start: 2011
  9. PROGRAF [Concomitant]
     Active Substance: TACROLIMUS\TACROLIMUS ANHYDROUS
     Indication: IMMUNOSUPPRESSION
     Dosage: 0.4 MG, QD
     Route: 048
  10. PROGRAF [Concomitant]
     Active Substance: TACROLIMUS\TACROLIMUS ANHYDROUS
     Indication: IMMUNOSUPPRESSION
     Dosage: 2 MG, QD
     Route: 048
     Dates: start: 2011
  11. HUMALOG [Suspect]
     Active Substance: INSULIN LISPRO
     Dosage: AFTER DELIVERY, BASAL 12 IU AND BOLUS 8 IU
     Route: 058

REACTIONS (10)
  - Maternal exposure during breast feeding [Unknown]
  - Abortion threatened [Unknown]
  - Hyperglycaemia [Recovered/Resolved]
  - Hypoglycaemia unawareness [Recovering/Resolving]
  - Oligohydramnios [Unknown]
  - Premature labour [Unknown]
  - Maternal exposure during pregnancy [Recovered/Resolved]
  - Gestational hypertension [Recovered/Resolved]
  - Placental infarction [Unknown]
  - Renal impairment [Recovered/Resolved]
